FAERS Safety Report 10477267 (Version 1)
Quarter: 2014Q3

REPORT INFORMATION
  Report Type: Spontaneous
  Country: US (occurrence: None)
  Receive Date: 20140925
  Receipt Date: 20140925
  Transmission Date: 20150326
  Serious: Yes (Death, Life-Threatening, Hospitalization)
  Sender: FDA-Public Use
  Company Number: None

PATIENT
  Age: 94 Year
  Sex: Male
  Weight: 110.8 kg

DRUGS (1)
  1. ENOXAPARIN [Suspect]
     Active Substance: ENOXAPARIN
     Indication: HAEMORRHAGE INTRACRANIAL
     Route: 058
     Dates: start: 20140618, end: 20140619

REACTIONS (4)
  - Confusional state [None]
  - Mental status changes [None]
  - Haemorrhage intracranial [None]
  - Haemorrhage [None]

NARRATIVE: CASE EVENT DATE: 20140618
